FAERS Safety Report 15823681 (Version 3)
Quarter: 2019Q3

REPORT INFORMATION
  Report Type: Spontaneous
  Country: US (occurrence: US)
  Receive Date: 20190114
  Receipt Date: 20190731
  Transmission Date: 20191004
  Serious: No
  Sender: FDA-Public Use
  Company Number: US-ACTELION-A-US2018-184103

PATIENT
  Age: 47 Year
  Sex: Female

DRUGS (4)
  1. OPSUMIT [Suspect]
     Active Substance: MACITENTAN
     Indication: PULMONARY HYPERTENSION
     Dosage: 10 MG, QD
     Route: 048
     Dates: start: 20181215
  2. SILDENAFIL. [Concomitant]
     Active Substance: SILDENAFIL
     Dosage: 20 MG, TID
  3. DOXYCYCLINE. [Concomitant]
     Active Substance: DOXYCYCLINE
  4. HYDROCODONE/ACETAMINOPHEN [Concomitant]
     Active Substance: ACETAMINOPHEN\HYDROCODONE

REACTIONS (4)
  - Dental operation [Unknown]
  - Pain [Unknown]
  - Bone graft [Unknown]
  - Oral infection [Not Recovered/Not Resolved]

NARRATIVE: CASE EVENT DATE: 20181219
